FAERS Safety Report 17107266 (Version 3)
Quarter: 2025Q2

REPORT INFORMATION
  Report Type: Spontaneous
  Country: PL (occurrence: PL)
  Receive Date: 20191203
  Receipt Date: 20250516
  Transmission Date: 20250717
  Serious: Yes (Hospitalization, Other)
  Sender: MYLAN
  Company Number: PL-KRKA-PL2019K10255LIT

PATIENT
  Age: 81 Year
  Sex: Female

DRUGS (32)
  1. AMLODIPINE [Suspect]
     Active Substance: AMLODIPINE BESYLATE
     Indication: Angina pectoris
  2. AMLODIPINE [Suspect]
     Active Substance: AMLODIPINE BESYLATE
     Route: 065
  3. AMLODIPINE [Suspect]
     Active Substance: AMLODIPINE BESYLATE
     Route: 065
  4. AMLODIPINE [Suspect]
     Active Substance: AMLODIPINE BESYLATE
  5. NICERGOLINE [Suspect]
     Active Substance: NICERGOLINE
     Indication: Product used for unknown indication
  6. NICERGOLINE [Suspect]
     Active Substance: NICERGOLINE
     Route: 065
  7. NICERGOLINE [Suspect]
     Active Substance: NICERGOLINE
     Route: 065
  8. NICERGOLINE [Suspect]
     Active Substance: NICERGOLINE
  9. ASPIRIN [Suspect]
     Active Substance: ASPIRIN
     Indication: Sinus arrhythmia
  10. ASPIRIN [Suspect]
     Active Substance: ASPIRIN
     Route: 065
  11. ASPIRIN [Suspect]
     Active Substance: ASPIRIN
     Route: 065
  12. ASPIRIN [Suspect]
     Active Substance: ASPIRIN
  13. INSULIN NOS [Concomitant]
     Active Substance: INSULIN NOS
  14. INSULIN NOS [Concomitant]
     Active Substance: INSULIN NOS
     Route: 065
  15. INSULIN NOS [Concomitant]
     Active Substance: INSULIN NOS
     Route: 065
  16. INSULIN NOS [Concomitant]
     Active Substance: INSULIN NOS
  17. DIGOXIN [Concomitant]
     Active Substance: DIGOXIN
  18. DIGOXIN [Concomitant]
     Active Substance: DIGOXIN
     Route: 065
  19. DIGOXIN [Concomitant]
     Active Substance: DIGOXIN
     Route: 065
  20. DIGOXIN [Concomitant]
     Active Substance: DIGOXIN
  21. ACETAMINOPHEN [Concomitant]
     Active Substance: ACETAMINOPHEN
  22. ACETAMINOPHEN [Concomitant]
     Active Substance: ACETAMINOPHEN
     Route: 065
  23. ACETAMINOPHEN [Concomitant]
     Active Substance: ACETAMINOPHEN
     Route: 065
  24. ACETAMINOPHEN [Concomitant]
     Active Substance: ACETAMINOPHEN
  25. DEXTROSE [Concomitant]
     Active Substance: DEXTROSE MONOHYDRATE
  26. DEXTROSE [Concomitant]
     Active Substance: DEXTROSE MONOHYDRATE
     Route: 065
  27. DEXTROSE [Concomitant]
     Active Substance: DEXTROSE MONOHYDRATE
     Route: 065
  28. DEXTROSE [Concomitant]
     Active Substance: DEXTROSE MONOHYDRATE
  29. POTASSIUM [Concomitant]
     Active Substance: POTASSIUM
  30. POTASSIUM [Concomitant]
     Active Substance: POTASSIUM
     Route: 065
  31. POTASSIUM [Concomitant]
     Active Substance: POTASSIUM
     Route: 065
  32. POTASSIUM [Concomitant]
     Active Substance: POTASSIUM

REACTIONS (1)
  - Thyrotoxic crisis [Recovered/Resolved]
